FAERS Safety Report 8393383-1 (Version None)
Quarter: 2012Q2

REPORT INFORMATION
  Report Type: 
  Country: None (occurrence: None)
  Receive Date: 20120529
  Receipt Date: 20120522
  Transmission Date: 20120825
  Serious: Yes (Other)
  Sender: FDA-Public Use
  Company Number: US-UCBSA-058007

PATIENT
  Age: 49 Year
  Sex: Female

DRUGS (2)
  1. KEPPRA XR [Suspect]
     Dosage: 1 AT NIGHT
  2. KEPPRA XR [Suspect]
     Dosage: 2 TABLETS

REACTIONS (5)
  - AGGRESSION [None]
  - AMINO ACID LEVEL DECREASED [None]
  - GASTROINTESTINAL ANASTOMOTIC LEAK [None]
  - PERSONALITY CHANGE [None]
  - THINKING ABNORMAL [None]
